FAERS Safety Report 7483771-X (Version None)
Quarter: 2011Q2

REPORT INFORMATION
  Report Type: 
  Country: None (occurrence: None)
  Receive Date: 20110517
  Receipt Date: 20110511
  Transmission Date: 20111010
  Serious: Yes (Life-Threatening, Hospitalization)
  Sender: FDA-Public Use
  Company Number: PHHY2011US40647

PATIENT
  Sex: Female

DRUGS (2)
  1. EXELON [Suspect]
     Route: 048
  2. NAMEDA [Concomitant]

REACTIONS (5)
  - NAUSEA [None]
  - FEELING ABNORMAL [None]
  - DISORIENTATION [None]
  - CONFUSIONAL STATE [None]
  - MEMORY IMPAIRMENT [None]
